FAERS Safety Report 20735101 (Version 2)
Quarter: 2022Q3

REPORT INFORMATION
  Report Type: Spontaneous
  Country: US (occurrence: US)
  Receive Date: 20220421
  Receipt Date: 20220825
  Transmission Date: 20221027
  Serious: Yes (Hospitalization)
  Sender: FDA-Public Use
  Company Number: US-PFIZER INC-202200552230

PATIENT
  Age: 14 Year
  Sex: Male
  Weight: 55.7 kg

DRUGS (11)
  1. CRIZOTINIB [Suspect]
     Active Substance: CRIZOTINIB
     Indication: Anaplastic large-cell lymphoma
     Dosage: 400 MG, 2X/DAY (2 CAPSULES TWICE DAILY BY MOUTH)
     Route: 048
     Dates: start: 20220207, end: 20220213
  2. CRIZOTINIB [Suspect]
     Active Substance: CRIZOTINIB
     Dosage: 400 MG, 2X/DAY (2 CAPSULES TWICE DAILY BY MOUTH)
     Route: 048
     Dates: start: 20220309, end: 20220406
  3. VORICONAZOLE [Concomitant]
     Active Substance: VORICONAZOLE
     Indication: Antifungal prophylaxis
     Dosage: UNK
  4. CYCLOSPORINE [Concomitant]
     Active Substance: CYCLOSPORINE
     Indication: Immunosuppressant drug therapy
     Dosage: UNK
  5. PEPCID [Concomitant]
     Active Substance: FAMOTIDINE
     Indication: Transplant
     Dosage: 40 MG
  6. ZOFRAN [Concomitant]
     Active Substance: ONDANSETRON HYDROCHLORIDE
     Indication: Nausea
     Dosage: UNK
  7. ATIVAN [Concomitant]
     Active Substance: LORAZEPAM
     Indication: Nausea
     Dosage: UNK
  8. OXYCODONE [Concomitant]
     Active Substance: OXYCODONE
     Indication: Pain
     Dosage: UNK, 1X/DAY
     Dates: start: 20220407
  9. CRESEMBA [Concomitant]
     Active Substance: ISAVUCONAZONIUM SULFATE
     Indication: Antifungal prophylaxis
     Dosage: UNK, 2X/DAY(DAILY IN THE MORNING- 2 TABLETS)
  10. CLARITIN [Concomitant]
     Active Substance: LORATADINE
     Indication: Headache
     Dosage: UNK
  11. SEPTRA DS [Concomitant]
     Active Substance: SULFAMETHOXAZOLE\TRIMETHOPRIM
     Indication: Pneumonia
     Dosage: UNK, 2X/DAY

REACTIONS (26)
  - Pyrexia [Unknown]
  - Visual impairment [Recovering/Resolving]
  - Liver disorder [Unknown]
  - Weight decreased [Unknown]
  - Feeding disorder [Unknown]
  - Hallucination, visual [Unknown]
  - Nausea [Not Recovered/Not Resolved]
  - Vomiting [Not Recovered/Not Resolved]
  - Diarrhoea [Not Recovered/Not Resolved]
  - Constipation [Not Recovered/Not Resolved]
  - Abdominal distension [Not Recovered/Not Resolved]
  - Faeces soft [Not Recovered/Not Resolved]
  - Malaise [Unknown]
  - Abdominal pain upper [Not Recovered/Not Resolved]
  - Secretion discharge [Not Recovered/Not Resolved]
  - Hepatic enzyme increased [Unknown]
  - Dyspepsia [Not Recovered/Not Resolved]
  - Optic nerve disorder [Unknown]
  - Chest pain [Unknown]
  - Headache [Unknown]
  - White blood cell count decreased [Unknown]
  - Screaming [Unknown]
  - Crying [Unknown]
  - Hyperchlorhydria [Unknown]
  - Musculoskeletal chest pain [Unknown]
  - Cholelithiasis [Unknown]

NARRATIVE: CASE EVENT DATE: 20220208
